FAERS Safety Report 25723686 (Version 1)
Quarter: 2025Q3

REPORT INFORMATION
  Report Type: Spontaneous
  Country: EU (occurrence: EU)
  Receive Date: 20250825
  Receipt Date: 20250825
  Transmission Date: 20251020
  Serious: Yes (Other)
  Sender: MERCK SHARP & DOHME LLC
  Company Number: None

PATIENT
  Age: 78 Year
  Sex: Female

DRUGS (5)
  1. KEYTRUDA [Suspect]
     Active Substance: PEMBROLIZUMAB
     Indication: Bronchial carcinoma
     Route: 042
     Dates: start: 20250626
  2. KEYTRUDA [Suspect]
     Active Substance: PEMBROLIZUMAB
     Indication: Bronchial carcinoma
     Route: 042
     Dates: start: 202501, end: 20250403
  3. DATOPOTAMAB DERUXTECAN ((MAMMAL/HAMSTER/CELLS CHO)) ((GB)) [Concomitant]
     Indication: Bronchial carcinoma
     Route: 042
     Dates: start: 20250626
  4. DATOPOTAMAB DERUXTECAN ((MAMMAL/HAMSTER/CELLS CHO)) ((GB)) [Concomitant]
     Indication: Bronchial carcinoma
     Route: 042
     Dates: end: 20250403
  5. CARBOPLATIN [Concomitant]
     Active Substance: CARBOPLATIN
     Indication: Bronchial carcinoma
     Route: 042
     Dates: end: 20250403

REACTIONS (2)
  - Troponin I increased [Recovering/Resolving]
  - Immune-mediated myocarditis [Not Recovered/Not Resolved]

NARRATIVE: CASE EVENT DATE: 20250715
